FAERS Safety Report 8934699 (Version 4)
Quarter: 2013Q1

REPORT INFORMATION
  Report Type: Spontaneous
  Country: US (occurrence: US)
  Receive Date: 20121129
  Receipt Date: 20130214
  Transmission Date: 20140127
  Serious: Yes (Other)
  Sender: FDA-Public Use
  Company Number: CHPA2010US09218

PATIENT
  Age: 76 Year
  Sex: Male
  Weight: 92.97 kg

DRUGS (4)
  1. VOLTAREN GEL [Suspect]
     Indication: TENDON INJURY
     Dosage: 2 G, QID
     Route: 061
     Dates: start: 20100524
  2. VOLTAREN GEL [Suspect]
     Dosage: 2 G, TID
  3. VOLTAREN GEL [Suspect]
     Dosage: 2 G, BID
     Route: 061
  4. COUMADIN ^BOOTS^ [Concomitant]
     Route: 048

REACTIONS (4)
  - Muscle disorder [Recovered/Resolved]
  - Myalgia [Not Recovered/Not Resolved]
  - Drug ineffective for unapproved indication [Unknown]
  - Drug administered at inappropriate site [Unknown]
